FAERS Safety Report 5867396-5 (Version None)
Quarter: 2008Q3

REPORT INFORMATION
  Report Type: 
  Country: None (occurrence: None)
  Receive Date: 20080902
  Receipt Date: 20080826
  Transmission Date: 20090109
  Serious: Yes (Hospitalization)
  Sender: FDA-Public Use
  Company Number: PHHO2000IT06856

PATIENT
  Sex: Male
  Weight: 51 kg

DRUGS (4)
  1. DIOVAN T30230+ [Suspect]
     Dosage: 40 MG, QD
     Route: 065
     Dates: start: 20000330, end: 20000613
  2. DIOVAN T30230+ [Suspect]
     Dosage: 80 MG, QD
     Route: 065
     Dates: start: 20000614, end: 20000627
  3. DIOVAN T30230+ [Suspect]
     Dosage: 160 MG, QD
     Route: 065
     Dates: start: 20000628
  4. HYDROCHLOROTHIAZIDE [Suspect]
     Route: 065
     Dates: start: 20000628

REACTIONS (1)
  - ANGINA PECTORIS [None]
